FAERS Safety Report 7407338-4 (Version None)
Quarter: 2011Q2

REPORT INFORMATION
  Report Type: 
  Country: None (occurrence: None)
  Receive Date: 20110411
  Receipt Date: 20110330
  Transmission Date: 20111010
  Serious: Yes (Other)
  Sender: FDA-Public Use
  Company Number: PHHY2011US25032

PATIENT
  Sex: Female

DRUGS (6)
  1. GILENYA [Suspect]
     Indication: MULTIPLE SCLEROSIS
     Dosage: 0.5 MG, QD
     Route: 048
     Dates: start: 20110318
  2. HYPROLOSE [Concomitant]
     Indication: PAIN
     Dosage: UNK
     Route: 048
  3. ALBUTEROL [Concomitant]
     Indication: CHRONIC OBSTRUCTIVE PULMONARY DISEASE
     Dosage: UNK
     Route: 045
  4. PROTONIX [Concomitant]
     Indication: CHRONIC OBSTRUCTIVE PULMONARY DISEASE
     Dosage: UNK
     Route: 048
  5. SYNTHROID [Concomitant]
     Indication: HYPOTHYROIDIC GOITRE
     Dosage: UNK
  6. LIDODERM [Concomitant]
     Indication: PAIN
     Dosage: UNK

REACTIONS (5)
  - NAUSEA [None]
  - ATRIAL FLUTTER [None]
  - DIZZINESS [None]
  - HEART RATE DECREASED [None]
  - CHEST DISCOMFORT [None]
